FAERS Safety Report 8296441-5 (Version None)
Quarter: 2012Q2

REPORT INFORMATION
  Report Type: 
  Country: None (occurrence: None)
  Receive Date: 20120418
  Receipt Date: 20120410
  Transmission Date: 20120825
  Serious: Yes (Other)
  Sender: FDA-Public Use
  Company Number: DE-FRI-1000029886

PATIENT
  Sex: Male

DRUGS (4)
  1. VENLAFAXINE HYDROCHLORIDE [Concomitant]
     Indication: DEPRESSION
  2. MIRTAZAPINE [Suspect]
     Indication: DEPRESSION
  3. ESCITALOPRAM [Suspect]
     Indication: DEPRESSION
  4. INSIDON [Concomitant]
     Indication: DEPRESSION

REACTIONS (1)
  - MYASTHENIA GRAVIS [None]
